FAERS Safety Report 13646745 (Version 1)
Quarter: 2017Q2

REPORT INFORMATION
  Report Type: Spontaneous
  Country: US (occurrence: US)
  Receive Date: 20170612
  Receipt Date: 20170612
  Transmission Date: 20170830
  Serious: No
  Sender: FDA-Public Use
  Company Number: None

PATIENT
  Age: 17 Year
  Sex: Male

DRUGS (1)
  1. HUMIRA [Suspect]
     Active Substance: ADALIMUMAB
     Indication: CROHN^S DISEASE
     Route: 058
     Dates: start: 20170217

REACTIONS (4)
  - Migraine [None]
  - Ankylosing spondylitis [None]
  - Disease recurrence [None]
  - Photophobia [None]

NARRATIVE: CASE EVENT DATE: 20170508
